FAERS Safety Report 6250899-1 (Version None)
Quarter: 2009Q2

REPORT INFORMATION
  Report Type: 
  Country: None (occurrence: None)
  Receive Date: 20090630
  Receipt Date: 20090526
  Transmission Date: 20091009
  Serious: No
  Sender: FDA-Public Use
  Company Number: US-BAUSCH-2009BL002537

PATIENT
  Age: 60 Year
  Sex: Female

DRUGS (10)
  1. ALAWAY [Suspect]
     Indication: OCULAR HYPERAEMIA
     Route: 047
     Dates: start: 20090506, end: 20090506
  2. ALAWAY [Suspect]
     Indication: EYE PRURITUS
     Route: 047
     Dates: start: 20090506, end: 20090506
  3. ALAWAY [Suspect]
     Route: 047
     Dates: start: 20090509, end: 20090509
  4. ALAWAY [Suspect]
     Route: 047
     Dates: start: 20090509, end: 20090509
  5. PROZAC [Concomitant]
     Indication: ANXIETY
  6. ALPRAZOLAM [Concomitant]
     Indication: DEPRESSION
     Route: 048
  7. TRIAMTERENE AND HYDROCHLOROTHIAZID ^HARRIS^ [Concomitant]
     Indication: HYPERTENSION
     Route: 048
  8. LIDODERM [Concomitant]
     Indication: SURGERY
     Route: 062
  9. ESTRADIOL [Concomitant]
     Indication: HORMONE THERAPY
     Route: 048
  10. NITROGLYCERIN [Concomitant]
     Indication: PALPITATIONS

REACTIONS (1)
  - DRUG HYPERSENSITIVITY [None]
